FAERS Safety Report 20604837 (Version 1)
Quarter: 2022Q1

REPORT INFORMATION
  Report Type: Spontaneous
  Country: DE (occurrence: DE)
  Receive Date: 20220317
  Receipt Date: 20220317
  Transmission Date: 20220423
  Serious: Yes (Hospitalization)
  Sender: FDA-Public Use
  Company Number: DE-ABBVIE-22K-062-4319550-00

PATIENT
  Age: 19 Month
  Sex: Male
  Weight: 12 kg

DRUGS (3)
  1. VALPROATE SODIUM [Suspect]
     Active Substance: VALPROATE SODIUM
     Indication: Seizure prophylaxis
     Dosage: ADMINISTERED ONLY TWICE
     Route: 048
     Dates: start: 20200203
  2. AMOXICILLIN TRIHYDRATE [Concomitant]
     Active Substance: AMOXICILLIN
     Indication: Otitis media
     Dates: start: 20200208, end: 20200211
  3. DIAZEPAM [Concomitant]
     Active Substance: DIAZEPAM
     Indication: Febrile convulsion
     Dates: start: 20200212

REACTIONS (4)
  - Febrile convulsion [Recovered/Resolved]
  - Treatment noncompliance [Unknown]
  - Product administration error [Unknown]
  - Product dose omission issue [Unknown]

NARRATIVE: CASE EVENT DATE: 20200212
